FAERS Safety Report 9039531 (Version 1)
Quarter: 2013Q1

REPORT INFORMATION
  Report Type: Spontaneous
  Country: US (occurrence: None)
  Receive Date: 20130123
  Receipt Date: 20130123
  Transmission Date: 20140127
  Serious: Yes (Other)
  Sender: FDA-Public Use
  Company Number: None

PATIENT
  Sex: Male
  Weight: 165.9 kg

DRUGS (2)
  1. MONTELUKAST [Suspect]
     Indication: ASTHMA
     Dosage: SINGULAIR 10 MG  DAILY PO?YEARS
     Route: 048
  2. MONTELUKAST [Suspect]
     Indication: RHINITIS ALLERGIC
     Dosage: SINGULAIR 10 MG  DAILY PO?YEARS
     Route: 048

REACTIONS (2)
  - Product substitution issue [None]
  - Asthma [None]
